FAERS Safety Report 18954365 (Version 1)
Quarter: 2021Q1

REPORT INFORMATION
  Report Type: Spontaneous
  Country: US (occurrence: US)
  Receive Date: 20210301
  Receipt Date: 20210301
  Transmission Date: 20210420
  Serious: Yes (Other)
  Sender: FDA-Public Use
  Company Number: US-SA-2021SA065903

PATIENT
  Sex: Female

DRUGS (1)
  1. AUBAGIO [Suspect]
     Active Substance: TERIFLUNOMIDE
     Indication: MULTIPLE SCLEROSIS
     Route: 048
     Dates: start: 20200310

REACTIONS (10)
  - Nausea [Unknown]
  - Pain [Unknown]
  - Iron deficiency [Unknown]
  - Polyneuropathy [Unknown]
  - Prostate cancer [Unknown]
  - Gastritis [Unknown]
  - Erectile dysfunction [Unknown]
  - Type 2 diabetes mellitus [Unknown]
  - Anxiety disorder [Unknown]
  - Vomiting [Unknown]
